FAERS Safety Report 26083283 (Version 2)
Quarter: 2025Q4

REPORT INFORMATION
  Report Type: Report from Study
  Country: US (occurrence: US)
  Receive Date: 20251124
  Receipt Date: 20251212
  Transmission Date: 20260118
  Serious: No
  Sender: MALLINCKRODT
  Company Number: US-MALLINCKRODT-MNK202507237

PATIENT
  Age: 32 Year
  Sex: Female
  Weight: 145 kg

DRUGS (10)
  1. CORTICOTROPIN [Suspect]
     Active Substance: CORTICOTROPIN
     Indication: Multiple sclerosis
     Dosage: 80 UNITS
     Route: 058
     Dates: start: 20251113
  2. COPAXONE [Concomitant]
     Active Substance: GLATIRAMER ACETATE
     Dosage: UNKNOWN
  3. KESIMPTA [Concomitant]
     Active Substance: OFATUMUMAB
     Dosage: UNKNOWN
  4. B12 ACTIVE [Concomitant]
     Dosage: UNKNOWN
  5. MAGNESIUM [Concomitant]
     Active Substance: MAGNESIUM
     Dosage: UNKNOWN
  6. VITAMIN D3 [Concomitant]
     Active Substance: CHOLECALCIFEROL
     Dosage: UNKNOWN
  7. FLUOXETINE HYDROCHLORIDE [Concomitant]
     Active Substance: FLUOXETINE HYDROCHLORIDE
     Dosage: UNKNOWN
  8. ONDANSETRON HYDROCHLORIDE [Concomitant]
     Active Substance: ONDANSETRON HYDROCHLORIDE
     Dosage: UNKNOWN
  9. ATIVAN [Concomitant]
     Active Substance: LORAZEPAM
     Dosage: UNKNOWN
  10. BACLOFEN [Concomitant]
     Active Substance: BACLOFEN
     Dosage: UNKNOWN

REACTIONS (5)
  - Injection site erythema [Unknown]
  - Injection site bruising [Unknown]
  - Injection site pruritus [Recovering/Resolving]
  - Injection site swelling [Recovering/Resolving]
  - Hypersensitivity [Recovering/Resolving]

NARRATIVE: CASE EVENT DATE: 20250101
